FAERS Safety Report 6755445-1 (Version None)
Quarter: 2010Q2

REPORT INFORMATION
  Report Type: 
  Country: None (occurrence: None)
  Receive Date: 20100604
  Receipt Date: 20100522
  Transmission Date: 20101027
  Serious: Yes (Other)
  Sender: FDA-Public Use
  Company Number: US-BAYER-201026334GPV

PATIENT
  Age: 31 Year
  Sex: Female

DRUGS (6)
  1. FLUDARABINE [Suspect]
     Indication: STEM CELL TRANSPLANT
     Dosage: FIVE DOSES
     Route: 042
  2. MELPHALAN [Suspect]
     Indication: MYCOSIS FUNGOIDES
     Dosage: TWO DOSES
  3. TACROLIMUS [Concomitant]
     Indication: PROPHYLAXIS AGAINST GRAFT VERSUS HOST DISEASE
     Dosage: ON DAYS 1, 3, 6 AND 11
  4. TACROLIMUS [Concomitant]
  5. MINI METHOTREXATE [Concomitant]
     Indication: PROPHYLAXIS AGAINST GRAFT VERSUS HOST DISEASE
     Dosage: ON DAYS 1, 3, 6 AND 11
  6. NEUPOGEN [Concomitant]
     Dosage: FROM DAY 7 UNTIL ENGRAFTMENT

REACTIONS (12)
  - ACUTE GRAFT VERSUS HOST DISEASE [None]
  - ADENOVIRUS INFECTION [None]
  - ARTHRITIS BACTERIAL [None]
  - BRONCHOPULMONARY ASPERGILLOSIS [None]
  - CHRONIC GRAFT VERSUS HOST DISEASE [None]
  - CYTOMEGALOVIRUS INFECTION [None]
  - ENTEROCOCCUS TEST POSITIVE [None]
  - INFLUENZA [None]
  - ORGANISING PNEUMONIA [None]
  - PARAINFLUENZAE VIRUS INFECTION [None]
  - RESPIRATORY SYNCYTIAL VIRUS INFECTION [None]
  - VIRAL UPPER RESPIRATORY TRACT INFECTION [None]
